FAERS Safety Report 18973241 (Version 1)
Quarter: 2021Q1

REPORT INFORMATION
  Report Type: Spontaneous
  Country: GB (occurrence: GB)
  Receive Date: 20210305
  Receipt Date: 20210305
  Transmission Date: 20210420
  Serious: Yes (Other)
  Sender: FDA-Public Use
  Company Number: GB-ACCORD-218762

PATIENT
  Age: 89 Year
  Sex: Female
  Weight: 40 kg

DRUGS (5)
  1. DIGOXIN. [Concomitant]
     Active Substance: DIGOXIN
  2. ALENDRONATE SODIUM/ALENDRONIC ACID [Concomitant]
     Active Substance: ALENDRONATE SODIUM
  3. BISOPROLOL [Concomitant]
     Active Substance: BISOPROLOL
  4. NITROFURANTOIN/NITROFURANTOIN SODIUM [Concomitant]
     Active Substance: NITROFURANTOIN
     Indication: URINARY TRACT INFECTION
     Dates: start: 20210215
  5. MITOMYCIN. [Suspect]
     Active Substance: MITOMYCIN
     Indication: TRANSURETHRAL BLADDER RESECTION
     Dosage: 40 MG INSTALLATION
     Route: 043
     Dates: start: 20210212, end: 20210212

REACTIONS (1)
  - Bladder pain [Recovering/Resolving]

NARRATIVE: CASE EVENT DATE: 20210212
